FAERS Safety Report 16360738 (Version 1)
Quarter: 2019Q2

REPORT INFORMATION
  Report Type: Report from Study
  Country: US (occurrence: US)
  Receive Date: 20190528
  Receipt Date: 20190528
  Transmission Date: 20190711
  Serious: Yes (Life-Threatening, Other)
  Sender: FDA-Public Use
  Company Number: US-ROCHE-2298264

PATIENT
  Age: 79 Year
  Sex: Female
  Weight: 57.66 kg

DRUGS (15)
  1. PREDNISONE. [Concomitant]
     Active Substance: PREDNISONE
     Route: 065
     Dates: start: 20190430
  2. MIRALAX [Concomitant]
     Active Substance: POLYETHYLENE GLYCOL 3350
  3. FOLIC ACID. [Concomitant]
     Active Substance: FOLIC ACID
  4. ONDANSETRON [Concomitant]
     Active Substance: ONDANSETRON
  5. BISACODYL. [Concomitant]
     Active Substance: BISACODYL
  6. ALECENSARO [Suspect]
     Active Substance: ALECTINIB
     Indication: BRONCHIAL CARCINOMA
     Dosage: TAKE 4 TABLET(S) BY MOUTH TWICE A DAY WITH FOOD, 600 MG AT AM AND 600 MG AT PM
     Route: 048
     Dates: start: 20190211, end: 20190402
  7. METOPROLOL. [Concomitant]
     Active Substance: METOPROLOL
  8. MILK OF MAGNESIA [Concomitant]
     Active Substance: MAGNESIUM HYDROXIDE
  9. XARELTO [Concomitant]
     Active Substance: RIVAROXABAN
  10. DOCUSATE [Concomitant]
     Active Substance: DOCUSATE
  11. ALECENSARO [Suspect]
     Active Substance: ALECTINIB
     Indication: NON-SMALL CELL LUNG CANCER
  12. ALPRAZOLAM. [Concomitant]
     Active Substance: ALPRAZOLAM
  13. KEPPRA [Concomitant]
     Active Substance: LEVETIRACETAM
  14. ALECENSARO [Suspect]
     Active Substance: ALECTINIB
     Indication: METASTASIS
     Route: 048
     Dates: start: 20190211, end: 20190401
  15. ACETAMINOPHEN. [Concomitant]
     Active Substance: ACETAMINOPHEN

REACTIONS (2)
  - Liver disorder [Unknown]
  - Hepatitis acute [Recovering/Resolving]

NARRATIVE: CASE EVENT DATE: 20190401
